FAERS Safety Report 7688470-7 (Version None)
Quarter: 2011Q3

REPORT INFORMATION
  Report Type: 
  Country: None (occurrence: None)
  Receive Date: 20110817
  Receipt Date: 20110805
  Transmission Date: 20111222
  Serious: Yes (Hospitalization)
  Sender: FDA-Public Use
  Company Number: CA-JNJFOC-20110804628

PATIENT
  Sex: Female
  Weight: 40.4 kg

DRUGS (1)
  1. REMICADE [Suspect]
     Indication: CROHN'S DISEASE
     Route: 042
     Dates: start: 20070101

REACTIONS (2)
  - ABSCESS JAW [None]
  - CHRONIC OBSTRUCTIVE PULMONARY DISEASE [None]
